FAERS Safety Report 9498229 (Version 8)
Quarter: 2015Q2

REPORT INFORMATION
  Report Type: Spontaneous
  Country: US (occurrence: US)
  Receive Date: 20130904
  Receipt Date: 20150507
  Transmission Date: 20150821
  Serious: Yes (Hospitalization, Other)
  Sender: FDA-Public Use
  Company Number: US-BAYER-2013-106178

PATIENT
  Age: 36 Year
  Sex: Female
  Weight: 109 kg

DRUGS (5)
  1. MIRENA [Suspect]
     Active Substance: LEVONORGESTREL
     Indication: CONTRACEPTION
     Dosage: 20 MCG/24HR, CONT
     Route: 015
     Dates: start: 20110420, end: 2013
  2. MIRENA [Suspect]
     Active Substance: LEVONORGESTREL
     Indication: CONTRACEPTION
     Dosage: 20 MCG/24HR, CONT
     Route: 015
     Dates: start: 2006, end: 2011
  3. TOPAMAX [Concomitant]
     Active Substance: TOPIRAMATE
     Dosage: UNK
  4. HUMULIN R [Concomitant]
     Active Substance: INSULIN HUMAN
  5. CYMBALTA [Concomitant]
     Active Substance: DULOXETINE HYDROCHLORIDE

REACTIONS (11)
  - Depression [None]
  - Anxiety [None]
  - Genital haemorrhage [None]
  - Drug ineffective [None]
  - Emotional distress [None]
  - Infertility female [None]
  - Pregnancy with contraceptive device [None]
  - Injury [None]
  - Pain [None]
  - Abortion missed [None]
  - Uterine perforation [None]

NARRATIVE: CASE EVENT DATE: 2012
